FAERS Safety Report 4609836-5 (Version None)
Quarter: 2005Q1

REPORT INFORMATION
  Report Type: 
  Country: None (occurrence: None)
  Receive Date: 20050316
  Receipt Date: 20050309
  Transmission Date: 20050727
  Serious: Yes (Life-Threatening)
  Sender: FDA-Public Use
  Company Number: 200512150GDDC

PATIENT
  Age: 63 Year
  Sex: Male

DRUGS (3)
  1. RIFAMPICIN [Suspect]
     Indication: TUBERCULOSIS
     Dosage: DOSE: UNK
     Dates: start: 20041001, end: 20050201
  2. ISONIAZID [Suspect]
     Indication: TUBERCULOSIS
     Dosage: DOSE: UNK
     Dates: start: 20041001, end: 20050201
  3. PYRAZINAMIDE [Suspect]
     Indication: TUBERCULOSIS
     Dosage: DOSE: UNK
     Dates: start: 20041001, end: 20050201

REACTIONS (2)
  - HEPATIC FAILURE [None]
  - MULTI-ORGAN FAILURE [None]
